FAERS Safety Report 9715269 (Version 3)
Quarter: 2013Q4

REPORT INFORMATION
  Report Type: Report from Study
  Country: CA (occurrence: CA)
  Receive Date: 20131127
  Receipt Date: 20131128
  Transmission Date: 20140711
  Serious: Yes (Other)
  Sender: FDA-Public Use
  Company Number: CA-ROCHE-1200173

PATIENT
  Age: 71 Year
  Sex: Male
  Weight: 75 kg

DRUGS (9)
  1. ACTEMRA [Suspect]
     Indication: RHEUMATOID ARTHRITIS
     Route: 058
  2. ACTEMRA [Suspect]
     Route: 042
     Dates: start: 20130304
  3. METHOTREXATE [Concomitant]
  4. PLAQUENIL [Concomitant]
  5. APO-HYDROXYQUINE [Concomitant]
  6. ACTONEL [Concomitant]
  7. FOLIC ACID [Concomitant]
  8. PANTOPRAZOLE [Concomitant]
  9. AMLODIPINE [Concomitant]

REACTIONS (6)
  - Arthralgia [Not Recovered/Not Resolved]
  - Heart rate irregular [Recovered/Resolved]
  - Productive cough [Recovered/Resolved]
  - Lung infection [Recovered/Resolved]
  - Onychomadesis [Unknown]
  - Scratch [Unknown]
